FAERS Safety Report 23807952 (Version 4)
Quarter: 2024Q3

REPORT INFORMATION
  Report Type: Report from Study
  Country: FR (occurrence: FR)
  Receive Date: 20240502
  Receipt Date: 20240708
  Transmission Date: 20241017
  Serious: Yes (Hospitalization, Other)
  Sender: PFIZER
  Company Number: FR-GLAXOSMITHKLINE-FR2024GSK049624

PATIENT
  Age: 64 Year
  Sex: Female
  Weight: 48 kg

DRUGS (3)
  1. CARBOPLATIN [Suspect]
     Active Substance: CARBOPLATIN
     Indication: Endometrial adenocarcinoma
     Dosage: 190 MG, CYCLIC (C4)
     Route: 042
     Dates: start: 20240215, end: 20240215
  2. PACLITAXEL [Suspect]
     Active Substance: PACLITAXEL
     Indication: Endometrial adenocarcinoma
     Dosage: 120 MG, CYCLIC (C4)
     Route: 042
     Dates: start: 20240215, end: 20240215
  3. JEMPERLI [Suspect]
     Active Substance: DOSTARLIMAB-GXLY
     Indication: Endometrial adenocarcinoma
     Dosage: 500 MG, EVERY 4 WEEKS (C2)
     Route: 042
     Dates: start: 20240208, end: 20240208

REACTIONS (3)
  - Pyrexia [Recovered/Resolved]
  - Mucosal inflammation [Unknown]
  - Oesophagitis [Unknown]

NARRATIVE: CASE EVENT DATE: 20240215
